FAERS Safety Report 17800203 (Version 1)
Quarter: 2020Q2

REPORT INFORMATION
  Report Type: Spontaneous
  Country: US (occurrence: US)
  Receive Date: 20200518
  Receipt Date: 20200518
  Transmission Date: 20200714
  Serious: Yes (Hospitalization)
  Sender: FDA-Public Use
  Company Number: US-RISING PHARMACEUTICALS, INC.-2020RIS00211

PATIENT
  Age: 68 Year
  Sex: Female
  Weight: 56.69 kg

DRUGS (20)
  1. RISAQUAD [Suspect]
     Active Substance: DIETARY SUPPLEMENT\PROBIOTICS
     Dosage: 1 CAPSULES, 1X/DAY
     Route: 048
     Dates: start: 1998, end: 20200224
  2. LIBRAX [Concomitant]
     Active Substance: CHLORDIAZEPOXIDE HYDROCHLORIDE\CLIDINIUM BROMIDE
  3. VITAMIN E [Concomitant]
     Active Substance: .ALPHA.-TOCOPHEROL
  4. RISAQUAD [Suspect]
     Active Substance: DIETARY SUPPLEMENT\PROBIOTICS
     Dosage: 1 CAPSULES, 1X/DAY
     Route: 048
     Dates: start: 20200430
  5. CIPROFLOXACIN. [Suspect]
     Active Substance: CIPROFLOXACIN
     Dosage: UNK
     Dates: start: 20200227
  6. CALCIUM [Concomitant]
     Active Substance: CALCIUM
  7. GLUCOSAMINE CHONDROITIN [Concomitant]
     Active Substance: CHONDROITIN SULFATE (BOVINE)\GLUCOSAMINE HYDROCHLORIDE
  8. BIOTIN [Concomitant]
     Active Substance: BIOTIN
  9. VITAMIN B COMPLEX [Concomitant]
     Active Substance: CYANOCOBALAMIN\DEXPANTHENOL\NIACINAMIDE\PYRIDOXINE HYDROCHLORIDE\RIBOFLAVIN 5^-PHOSPHATE SODIUM\THIAMINE HYDROCHLORIDE\VITAMIN B COMPLEX
  10. EVENING PRIMROSE OIL [Concomitant]
     Active Substance: EVENING PRIMROSE OIL\HERBALS
  11. CIPROFLOXACIN. [Suspect]
     Active Substance: CIPROFLOXACIN
     Indication: CYSTITIS
     Dosage: UNK
     Route: 048
     Dates: start: 20200211
  12. CENTRUM SILVER [Concomitant]
     Active Substance: MINERALS\VITAMINS
  13. VITAMIN C [Concomitant]
     Active Substance: ASCORBIC ACID
  14. FOSAMAX [Concomitant]
     Active Substance: ALENDRONATE SODIUM
  15. VITAMIN D3 [Concomitant]
     Active Substance: CHOLECALCIFEROL
  16. PRILOSEC [Concomitant]
     Active Substance: OMEPRAZOLE MAGNESIUM
  17. LIPITOR [Concomitant]
     Active Substance: ATORVASTATIN CALCIUM
  18. AMOXICILLIN. [Suspect]
     Active Substance: AMOXICILLIN
     Indication: SINUS CONGESTION
     Dosage: UNK
     Route: 048
     Dates: start: 20191223
  19. ZOLOFT [Concomitant]
     Active Substance: SERTRALINE HYDROCHLORIDE
  20. AMOXICILLIN. [Suspect]
     Active Substance: AMOXICILLIN
     Indication: RESPIRATORY TRACT CONGESTION

REACTIONS (9)
  - Chills [Recovered/Resolved]
  - Sinus congestion [Recovered/Resolved]
  - Respiratory tract congestion [Recovered/Resolved]
  - Cystitis [Recovered/Resolved]
  - Ear pain [Recovered/Resolved]
  - Food poisoning [Recovered/Resolved]
  - Clostridium difficile colitis [Recovered/Resolved]
  - Malaise [Recovered/Resolved]
  - Vomiting [Recovered/Resolved]

NARRATIVE: CASE EVENT DATE: 20191223
